FAERS Safety Report 9183620 (Version 1)
Quarter: 2013Q1

REPORT INFORMATION
  Report Type: Spontaneous
  Country: DE (occurrence: DE)
  Receive Date: 20130322
  Receipt Date: 20130322
  Transmission Date: 20140127
  Serious: No
  Sender: FDA-Public Use
  Company Number: DE-ELI_LILLY_AND_COMPANY-DE201303003684

PATIENT
  Age: 20 Month
  Sex: Female
  Weight: 13 kg

DRUGS (1)
  1. CYMBALTA [Suspect]
     Dosage: 60 MG, SINGLE

REACTIONS (1)
  - Accidental exposure to product by child [Unknown]
